FAERS Safety Report 10644935 (Version 4)
Quarter: 2015Q2

REPORT INFORMATION
  Report Type: Spontaneous
  Country: AR (occurrence: AR)
  Receive Date: 20141211
  Receipt Date: 20150402
  Transmission Date: 20150821
  Serious: Yes (Death, Hospitalization)
  Sender: FDA-Public Use
  Company Number: AR-ABBVIE-14K-007-1319159-00

PATIENT
  Age: 65 Year
  Sex: Female

DRUGS (1)
  1. HUMIRA [Suspect]
     Active Substance: ADALIMUMAB
     Indication: RHEUMATOID ARTHRITIS
     Route: 058
     Dates: end: 20141029

REACTIONS (5)
  - Amyloidosis [Fatal]
  - Hypoalbuminaemia [Recovering/Resolving]
  - Oedema peripheral [Recovering/Resolving]
  - Urinary tract infection [Fatal]
  - Proteinuria [Fatal]

NARRATIVE: CASE EVENT DATE: 201501
